FAERS Safety Report 8802596 (Version 2)
Quarter: 2015Q1

REPORT INFORMATION
  Report Type: Report from Study
  Country: US (occurrence: US)
  Receive Date: 20120921
  Receipt Date: 20150226
  Transmission Date: 20150721
  Serious: Yes (Death)
  Sender: FDA-Public Use
  Company Number: US-ROCHE-1092400

PATIENT
  Age: 75 Year
  Sex: Male
  Weight: 54.03 kg

DRUGS (11)
  1. AVASTIN [Suspect]
     Active Substance: BEVACIZUMAB
     Indication: RENAL CANCER
  2. TARCEVA [Suspect]
     Active Substance: ERLOTINIB HYDROCHLORIDE
     Indication: METASTASES TO LUNG
  3. CELEBREX [Concomitant]
     Active Substance: CELECOXIB
  4. AVASTIN [Suspect]
     Active Substance: BEVACIZUMAB
     Indication: LUNG NEOPLASM MALIGNANT
  5. DARVOCET [Concomitant]
     Active Substance: ACETAMINOPHEN\PROPOXYPHENE HYDROCHLORIDE
     Indication: RHEUMATOID ARTHRITIS
  6. KEFLEX [Concomitant]
     Active Substance: CEPHALEXIN
  7. PLAQUENIL [Concomitant]
     Active Substance: HYDROXYCHLOROQUINE SULFATE
  8. AVASTIN [Suspect]
     Active Substance: BEVACIZUMAB
     Indication: MALIGNANT URINARY TRACT NEOPLASM
  9. TARCEVA [Suspect]
     Active Substance: ERLOTINIB HYDROCHLORIDE
     Indication: RENAL CANCER
     Route: 048
  10. AVASTIN [Suspect]
     Active Substance: BEVACIZUMAB
     Indication: RENAL CANCER
     Dosage: IN 100ML IV FLUID OVER 30MIN
     Route: 042
     Dates: start: 20060117, end: 20060502
  11. OXYCONTIN [Concomitant]
     Active Substance: OXYCODONE HYDROCHLORIDE
     Indication: RHEUMATOID ARTHRITIS

REACTIONS (22)
  - Constipation [Unknown]
  - Arthritis [Unknown]
  - Petechiae [Unknown]
  - Contusion [Unknown]
  - Cough [Unknown]
  - Fall [Unknown]
  - Diarrhoea [Unknown]
  - Dyspnoea [Unknown]
  - Off label use [Unknown]
  - Mucosal inflammation [Unknown]
  - Proteinuria [Unknown]
  - Rheumatoid nodule [Unknown]
  - Rash [Unknown]
  - Skin exfoliation [Unknown]
  - Staphylococcal infection [Unknown]
  - Arthralgia [Unknown]
  - Abdominal pain [Unknown]
  - Fatigue [Unknown]
  - Depression [Unknown]
  - Vascular calcification [Unknown]
  - Death [Fatal]
  - Skin reaction [Unknown]

NARRATIVE: CASE EVENT DATE: 20060908
